FAERS Safety Report 18467661 (Version 1)
Quarter: 2020Q4

REPORT INFORMATION
  Report Type: Spontaneous
  Country: US (occurrence: US)
  Receive Date: 20201104
  Receipt Date: 20201104
  Transmission Date: 20210114
  Serious: No
  Sender: FDA-Public Use
  Company Number: None

PATIENT
  Age: 39 Year
  Sex: Male
  Weight: 85.5 kg

DRUGS (1)
  1. LAMOTRIGINE. [Suspect]
     Active Substance: LAMOTRIGINE
     Indication: AFFECTIVE DISORDER
     Dates: start: 20200828, end: 20201025

REACTIONS (11)
  - Back pain [None]
  - Headache [None]
  - Diplopia [None]
  - Dizziness [None]
  - Fall [None]
  - Intestinal haemorrhage [None]
  - Hypotension [None]
  - Dyspnoea [None]
  - Chest pain [None]
  - Gastrointestinal inflammation [None]
  - Splenomegaly [None]

NARRATIVE: CASE EVENT DATE: 20201025
